FAERS Safety Report 20087925 (Version 1)
Quarter: 2021Q4

REPORT INFORMATION
  Report Type: Spontaneous
  Country: IN (occurrence: IN)
  Receive Date: 20211118
  Receipt Date: 20211118
  Transmission Date: 20220303
  Serious: Yes (Other)
  Sender: FDA-Public Use
  Company Number: IN-ABBVIE-21K-078-4164569-00

PATIENT
  Age: 45 Year
  Sex: Female

DRUGS (1)
  1. VALPROATE SODIUM [Suspect]
     Active Substance: VALPROATE SODIUM
     Indication: Seizure
     Route: 065

REACTIONS (3)
  - Renal impairment [Unknown]
  - Drug reaction with eosinophilia and systemic symptoms [Unknown]
  - Hepatotoxicity [Recovering/Resolving]
